FAERS Safety Report 17225173 (Version 2)
Quarter: 2020Q1

REPORT INFORMATION
  Report Type: Spontaneous
  Country: SE (occurrence: SE)
  Receive Date: 20200102
  Receipt Date: 20200207
  Transmission Date: 20200409
  Serious: Yes (Hospitalization)
  Sender: FDA-Public Use
  Company Number: SE-MYLANLABS-2019M1132244

PATIENT
  Sex: Female

DRUGS (11)
  1. ALIMEMAZINE [Suspect]
     Active Substance: TRIMEPRAZINE
     Indication: PRODUCT USED FOR UNKNOWN INDICATION
     Dosage: OKLAR MANGD, 1, 1, TOTAL
     Route: 048
     Dates: start: 20181014, end: 20181014
  2. OLANZAPINE. [Suspect]
     Active Substance: OLANZAPINE
     Indication: PRODUCT USED FOR UNKNOWN INDICATION
     Dosage: 1 ST A 5 MG
     Route: 048
     Dates: start: 20181014, end: 20181014
  3. SERTRALINE [Suspect]
     Active Substance: SERTRALINE HYDROCHLORIDE
     Indication: PRODUCT USED FOR UNKNOWN INDICATION
     Dosage: OKLAR MANGD, 1, 1, TOTAL
     Route: 048
     Dates: start: 20181014, end: 20181014
  4. CISORDINOL                         /00876702/ [Suspect]
     Active Substance: ZUCLOPENTHIXOL
     Indication: PRODUCT USED FOR UNKNOWN INDICATION
     Dosage: OKLAR MANGD, 1, 1, TOTAL
     Route: 048
     Dates: start: 20181014, end: 20181014
  5. PARGITAN [Suspect]
     Active Substance: TRIHEXYPHENIDYL HYDROCHLORIDE
     Indication: PRODUCT USED FOR UNKNOWN INDICATION
     Dosage: OKLAR MANGD, 1, 1, TOTAL
     Route: 048
     Dates: start: 20181014, end: 20181014
  6. LAMOTRIGINE. [Suspect]
     Active Substance: LAMOTRIGINE
     Indication: PRODUCT USED FOR UNKNOWN INDICATION
     Dosage: OKLAR MANGD, 1, 1, TOTAL
     Route: 048
     Dates: start: 20181014, end: 20181014
  7. PROMETHAZINE [Suspect]
     Active Substance: PROMETHAZINE HYDROCHLORIDE
     Indication: PRODUCT USED FOR UNKNOWN INDICATION
     Dosage: 36 LERGIGAN A 25 MG
     Route: 048
     Dates: start: 20181014, end: 20181014
  8. ARIPIPRAZOLE. [Suspect]
     Active Substance: ARIPIPRAZOLE
     Indication: PRODUCT USED FOR UNKNOWN INDICATION
     Dosage: OKLAR M?NGD1,1, 1, TOTAL
     Route: 048
     Dates: start: 20181014, end: 20181014
  9. MELATONIN [Suspect]
     Active Substance: MELATONIN
     Indication: PRODUCT USED FOR UNKNOWN INDICATION
     Dosage: OKLAR MANGD, 1, 1, TOTAL
     Route: 048
     Dates: start: 20181014, end: 20181014
  10. STESOLID [Suspect]
     Active Substance: DIAZEPAM
     Indication: PRODUCT USED FOR UNKNOWN INDICATION
     Dosage: 4 STESOLID A 20 MG
     Route: 048
     Dates: start: 20181014, end: 20181014
  11. NALTREXONE [Suspect]
     Active Substance: NALTREXONE
     Indication: PRODUCT USED FOR UNKNOWN INDICATION
     Dosage: OKLAR MANGD, 1, 1, TOTAL
     Route: 048
     Dates: start: 20181014, end: 20181014

REACTIONS (4)
  - Intentional self-injury [Unknown]
  - Depressed level of consciousness [Unknown]
  - Fatigue [Unknown]
  - Intentional overdose [Unknown]

NARRATIVE: CASE EVENT DATE: 201810
